FAERS Safety Report 19090326 (Version 1)
Quarter: 2021Q2

REPORT INFORMATION
  Report Type: Spontaneous
  Country: US (occurrence: US)
  Receive Date: 20210405
  Receipt Date: 20210405
  Transmission Date: 20210717
  Serious: Yes (Hospitalization, Other)
  Sender: FDA-Public Use
  Company Number: US-ABBVIE-21K-163-3837506-00

PATIENT
  Age: 29 Year
  Sex: Male
  Weight: 85.35 kg

DRUGS (1)
  1. DEPAKOTE ER [Suspect]
     Active Substance: DIVALPROEX SODIUM
     Indication: SEIZURE
     Route: 048
     Dates: end: 2015

REACTIONS (6)
  - Seizure [Recovered/Resolved]
  - Drug ineffective [Unknown]
  - Cardiac failure [Recovered/Resolved]
  - Myocarditis [Recovered/Resolved]
  - Fall [Unknown]
  - Seizure [Unknown]

NARRATIVE: CASE EVENT DATE: 2018
